FAERS Safety Report 5031178-7 (Version None)
Quarter: 2006Q2

REPORT INFORMATION
  Report Type: 
  Country: None (occurrence: None)
  Receive Date: 20060619
  Receipt Date: 20060619
  Transmission Date: 20061013
  Serious: Yes (Life-Threatening, Other)
  Sender: FDA-Public Use
  Company Number: None

PATIENT
  Age: 37 Year
  Sex: Female
  Weight: 54.4316 kg

DRUGS (2)
  1. SEROQUEL [Suspect]
     Dosage: 600/400/200/100 WEVERY NIGHT PO
     Route: 048
     Dates: start: 20051201, end: 20060616
  2. VARIOUS ANTI-DEPRESSANTS [Concomitant]

REACTIONS (10)
  - DYSARTHRIA [None]
  - DYSSTASIA [None]
  - FALL [None]
  - FEELING DRUNK [None]
  - HALLUCINATION [None]
  - HALLUCINATIONS, MIXED [None]
  - JUDGEMENT IMPAIRED [None]
  - MEMORY IMPAIRMENT [None]
  - THINKING ABNORMAL [None]
  - VISUAL DISTURBANCE [None]
